FAERS Safety Report 9696110 (Version 1)
Quarter: 2013Q4

REPORT INFORMATION
  Report Type: Spontaneous
  Country: CA (occurrence: CA)
  Receive Date: 20131119
  Receipt Date: 20131119
  Transmission Date: 20140711
  Serious: Yes (Hospitalization)
  Sender: FDA-Public Use
  Company Number: CA-B.I. PHARMACEUTICALS,INC./RIDGEFIELD-2013-BI-37523CN

PATIENT
  Age: 82 Year
  Sex: Female
  Weight: 70 kg

DRUGS (18)
  1. TRAJENTA [Suspect]
     Route: 048
  2. AMLODIPINE [Concomitant]
  3. ARANESP [Concomitant]
     Route: 042
  4. ASA [Concomitant]
  5. ATIVAN [Concomitant]
  6. CALCIUM [Concomitant]
  7. CLONIDINE [Concomitant]
  8. LIPITOR [Concomitant]
  9. MONOCOR [Concomitant]
  10. NITRO-DUR [Concomitant]
     Dosage: FORMULATION: PATCH EXTENDED RELEASE
     Route: 062
  11. RENAGEL [Concomitant]
  12. SENOKOT [Concomitant]
  13. SERTRALINE [Concomitant]
  14. SODIUM BICARBONATE [Concomitant]
  15. SYNTHROID [Concomitant]
  16. TERAZOSIN [Concomitant]
  17. TOLBUTAMIDE [Concomitant]
  18. VITAMIN D [Concomitant]

REACTIONS (1)
  - Tubulointerstitial nephritis [Unknown]
